FAERS Safety Report 21058653 (Version 5)
Quarter: 2023Q2

REPORT INFORMATION
  Report Type: Spontaneous
  Country: CA (occurrence: CA)
  Receive Date: 20220708
  Receipt Date: 20230626
  Transmission Date: 20230722
  Serious: Yes (Other)
  Sender: FDA-Public Use
  Company Number: CA-PFIZER INC-202101467043

PATIENT
  Age: 59 Year
  Sex: Female

DRUGS (2)
  1. RUXIENCE [Suspect]
     Active Substance: RITUXIMAB-PVVR
     Indication: Autoimmune myositis
     Dosage: 1000 MG, (DAY 1 AND DAY 15)
     Route: 042
     Dates: start: 20220704, end: 20220808
  2. RUXIENCE [Suspect]
     Active Substance: RITUXIMAB-PVVR
     Dosage: UNK

REACTIONS (4)
  - Trigger finger [Unknown]
  - Off label use [Unknown]
  - Off label use [Unknown]
  - COVID-19 [Unknown]

NARRATIVE: CASE EVENT DATE: 20220704
